FAERS Safety Report 5735583-2 (Version None)
Quarter: 2008Q2

REPORT INFORMATION
  Report Type: 
  Country: None (occurrence: None)
  Receive Date: 20080512
  Receipt Date: 20080430
  Transmission Date: 20081010
  Serious: Yes (Other)
  Sender: FDA-Public Use
  Company Number: US-PFIZER INC-2008023679

PATIENT
  Sex: Male
  Weight: 79.545 kg

DRUGS (5)
  1. CHANTIX [Suspect]
     Indication: SMOKING CESSATION THERAPY
     Route: 048
     Dates: start: 20080201, end: 20080311
  2. PLAVIX [Concomitant]
  3. ACEON [Concomitant]
  4. TOPROL-XL [Concomitant]
  5. VITAMINS [Concomitant]

REACTIONS (3)
  - AGGRESSION [None]
  - FEELING ABNORMAL [None]
  - HEART RATE INCREASED [None]
